FAERS Safety Report 21745213 (Version 1)
Quarter: 2022Q4

REPORT INFORMATION
  Report Type: Other
  Country: GB (occurrence: GB)
  Receive Date: 20221219
  Receipt Date: 20221219
  Transmission Date: 20230113
  Serious: Yes (Disabling)
  Sender: FDA-Public Use
  Company Number: GB-MACLEODS PHARMACEUTICALS US LTD-MAC2022038791

PATIENT

DRUGS (14)
  1. CLOPIDOGREL [Suspect]
     Active Substance: CLOPIDOGREL BISULFATE
     Indication: Ill-defined disorder
     Dosage: UNK
     Route: 065
     Dates: start: 20221114
  2. CLOPIDOGREL [Suspect]
     Active Substance: CLOPIDOGREL BISULFATE
     Indication: Cerebrovascular accident
     Dosage: 1 DOSAGE FORM, QD TAKE ONE TABLET ONCE EACH MORNING AFTER FOOD TO (TABLET)
     Route: 065
     Dates: start: 20221114
  3. UMECLIDINIUM BROMIDE\VILANTEROL TRIFENATATE [Concomitant]
     Active Substance: UMECLIDINIUM BROMIDE\VILANTEROL TRIFENATATE
     Indication: Ill-defined disorder
     Dosage: UNK UNK, QD (INHALE ONE DOSE ONCE A DAY TO HELP SYMPTOMS OF)
     Dates: start: 20220322
  4. COCODAMOL [Concomitant]
     Active Substance: ACETAMINOPHEN\CODEINE PHOSPHATE
     Indication: Ill-defined disorder
     Dosage: UNK TAKE 1-2 TABLETS UP TO FOUR TIMES DAILY)
     Route: 065
     Dates: start: 20160217
  5. DOXYCYCLINE [Concomitant]
     Active Substance: DOXYCYCLINE
     Indication: Ill-defined disorder
     Dosage: UNK, BID (FOR 2 WEEKS)
     Route: 065
     Dates: start: 20221123
  6. IBUPROFEN [Concomitant]
     Active Substance: IBUPROFEN
     Indication: Ill-defined disorder
     Dosage: UNK APPLY THREE TO FOUR TIMES/DAY FOR PAIN, STOP IF
     Route: 065
     Dates: start: 20210420
  7. IBUPROFEN [Concomitant]
     Active Substance: IBUPROFEN
     Indication: Pain
  8. LANSOPRAZOLE [Concomitant]
     Active Substance: LANSOPRAZOLE
     Indication: Ill-defined disorder
     Dosage: 1 DOSAGE FORM, QD (TAKE ONE CAPSULE ONCE EACH MORNING TO PROTECT)
     Route: 065
     Dates: start: 20221114
  9. POLYETHYLENE GLYCOLS [Concomitant]
     Active Substance: POLYETHYLENE GLYCOLS
     Indication: Ill-defined disorder
     Dosage: 1 DOSAGE FORM, QD (TAKE ONE SACHET EACH MORNING)
     Route: 065
     Dates: start: 20190410
  10. POLYETHYLENE GLYCOLS [Concomitant]
     Active Substance: POLYETHYLENE GLYCOLS
     Indication: Gastrointestinal motility disorder
  11. OMEPRAZOLE [Concomitant]
     Active Substance: OMEPRAZOLE
     Indication: Ill-defined disorder
     Dosage: UNK UNK, QD (TAKE ONE OR TWO CAPSULES ONCE PER DAY TO PROTE)
     Route: 065
     Dates: start: 20181029, end: 20221114
  12. PREDNISOLONE [Concomitant]
     Active Substance: PREDNISOLONE
     Indication: Ill-defined disorder
     Dosage: 6 DOSAGE FORM, QD
     Route: 065
     Dates: start: 20221123
  13. PRUCALOPRIDE [Concomitant]
     Active Substance: PRUCALOPRIDE
     Indication: Ill-defined disorder
     Dosage: UNK UNK, QD (ONCE DAILY AS INITIATED BY GASTROENTEROLOGY)
     Route: 065
     Dates: start: 20190410
  14. ALBUTEROL [Concomitant]
     Active Substance: ALBUTEROL
     Indication: Ill-defined disorder
     Dosage: UNK, PRN (INHALE ONE TO TWO SPRAYS AS NEEDED TO CONTROL)
     Dates: start: 20200228

REACTIONS (2)
  - Abdominal pain [Recovered/Resolved]
  - Headache [Recovered/Resolved]

NARRATIVE: CASE EVENT DATE: 20221117
